FAERS Safety Report 9065902 (Version 1)
Quarter: 2013Q1

REPORT INFORMATION
  Report Type: Report from Study
  Country: US (occurrence: US)
  Receive Date: 20130131
  Receipt Date: 20130131
  Transmission Date: 20140127
  Serious: No
  Sender: FDA-Public Use
  Company Number: US-ABBOTT-12P-163-1017257-00

PATIENT
  Age: 37 Year
  Sex: Female

DRUGS (5)
  1. HUMIRA [Suspect]
     Indication: PSORIATIC ARTHROPATHY
     Dates: start: 20121016, end: 20121016
  2. HUMIRA [Suspect]
     Dates: start: 20121023, end: 20121023
  3. HUMIRA [Suspect]
     Dates: start: 20121106
  4. BENADRYL [Concomitant]
     Indication: PRURITUS
  5. BENADRYL [Concomitant]
     Indication: SEASONAL ALLERGY

REACTIONS (1)
  - Injection site pruritus [Recovered/Resolved]
